FAERS Safety Report 8876232 (Version 1)
Quarter: 2012Q4

REPORT INFORMATION
  Report Type: 
  Country: FR (occurrence: FR)
  Receive Date: 20121030
  Receipt Date: 20121030
  Transmission Date: 20130627
  Serious: Yes (Other)
  Sender: FDA-Public Use
  Company Number: PHHY2012FR096149

PATIENT
  Age: 58 Year
  Sex: Female
  Weight: 49 kg

DRUGS (17)
  1. VANCOMYCIN SANDOZ [Suspect]
     Indication: ANTIBIOTIC PROPHYLAXIS
     Dosage: 750 mg, QD
     Route: 042
     Dates: start: 20120711, end: 20120711
  2. NEORAL [Suspect]
     Indication: RENAL TRANSPLANT
     Dosage: 50 mg, BID
     Route: 048
     Dates: end: 20120714
  3. GENTAMICINE [Suspect]
     Indication: ANTIBIOTIC PROPHYLAXIS
     Dosage: 250 mg, QD
     Route: 042
     Dates: start: 20120711, end: 20120712
  4. PRAZOSIN [Suspect]
     Indication: HYPERTENSION
     Dosage: 2.5 mg, QD
     Route: 048
     Dates: end: 20120712
  5. HEPSERA [Suspect]
     Indication: HEPATITIS B
     Dosage: 1 DF, TID
     Route: 048
     Dates: end: 20120712
  6. COAPROVEL [Suspect]
     Indication: HYPERTENSION
     Dosage: 1 DF, QD
     Route: 048
     Dates: end: 20120714
  7. CORTANCYL [Concomitant]
     Dosage: 1 DF, QD
  8. CELLCEPT [Concomitant]
     Dosage: 1 DF, BID
  9. ZEFFIX [Concomitant]
     Dosage: 1 DF, every three days
  10. ADANCOR [Concomitant]
     Dosage: 1 DF, BID
  11. KARDEGIC [Concomitant]
     Dosage: 1 DF, daily
  12. INEXIUM//ESOMEPRAZOLE MAGNESIUM [Concomitant]
     Dosage: 20 mg, daily
  13. LYRICA [Concomitant]
     Dosage: 1 DF, BID
  14. TAHOR [Concomitant]
     Dosage: 1 DF, daily
  15. CACIT [Concomitant]
     Dosage: 1 DF, daily
  16. XANAX [Concomitant]
  17. UNSPECIFIED ERYTHROPOIETIN PRODUCT [Concomitant]

REACTIONS (2)
  - Hyperkalaemia [Recovered/Resolved]
  - Renal failure [Recovered/Resolved]
